FAERS Safety Report 14348236 (Version 2)
Quarter: 2018Q2

REPORT INFORMATION
  Report Type: Spontaneous
  Country: CA (occurrence: CA)
  Receive Date: 20180103
  Receipt Date: 20180401
  Transmission Date: 20180711
  Serious: Yes (Other)
  Sender: FDA-Public Use
  Company Number: CA-SHIRE-CA201735460

PATIENT

DRUGS (2)
  1. PENICILLIN                         /00000901/ [Concomitant]
     Active Substance: PENICILLIN G
     Indication: DRUG HYPERSENSITIVITY
  2. GAMMAGARD LIQUID [Suspect]
     Active Substance: HUMAN IMMUNOGLOBULIN G
     Indication: IMMUNODEFICIENCY COMMON VARIABLE
     Dosage: 12.8 G, 1X/WEEK
     Route: 058

REACTIONS (6)
  - Abdominal tenderness [Recovered/Resolved]
  - Staphylococcal infection [Recovered/Resolved]
  - Abdominal mass [Recovered/Resolved]
  - Drug hypersensitivity [Unknown]
  - Product use issue [Unknown]
  - Abdominal abscess [Recovered/Resolved]
